FAERS Safety Report 9692951 (Version 1)
Quarter: 2013Q4

REPORT INFORMATION
  Report Type: Spontaneous
  Country: US (occurrence: US)
  Receive Date: 20131118
  Receipt Date: 20131118
  Transmission Date: 20140711
  Serious: No
  Sender: FDA-Public Use
  Company Number: US-GLAXOSMITHKLINE-A1043133A

PATIENT
  Age: 42 Year
  Sex: Male

DRUGS (1)
  1. COREG CR [Suspect]
     Indication: AORTIC SURGERY
     Dosage: 10MG TWICE PER DAY
     Route: 048
     Dates: start: 20130820

REACTIONS (3)
  - Drug prescribing error [Unknown]
  - Malaise [Unknown]
  - Underdose [Unknown]
